FAERS Safety Report 16177190 (Version 1)
Quarter: 2019Q2

REPORT INFORMATION
  Report Type: Spontaneous
  Country: US (occurrence: US)
  Receive Date: 20190410
  Receipt Date: 20190410
  Transmission Date: 20190711
  Serious: No
  Sender: FDA-Public Use
  Company Number: US-CEDIPROF, INC.-2065615

PATIENT
  Age: 38 Year
  Sex: Female

DRUGS (1)
  1. LEVO-T [Suspect]
     Active Substance: LEVOTHYROXINE SODIUM
     Indication: PRODUCT USED FOR UNKNOWN INDICATION

REACTIONS (5)
  - Heart rate increased [Unknown]
  - Hyperadrenalism [Unknown]
  - Anxiety [Unknown]
  - Muscle spasms [Unknown]
  - Tremor [Unknown]
